FAERS Safety Report 25524713 (Version 1)
Quarter: 2025Q3

REPORT INFORMATION
  Report Type: Spontaneous
  Country: US (occurrence: None)
  Receive Date: 20250705
  Receipt Date: 20250705
  Transmission Date: 20251021
  Serious: Yes (Hospitalization)
  Sender: FDA-CTU
  Company Number: None

PATIENT
  Sex: Female

DRUGS (1)
  1. HUMIRA [Suspect]
     Active Substance: ADALIMUMAB
     Indication: Hidradenitis
     Dosage: INJECT 40 MG UNDER THE SKIN (SUBCUTANEOUS INJECTION) ONCE A WEEK.
     Route: 058
     Dates: start: 20250521

REACTIONS (2)
  - Therapy non-responder [None]
  - Therapy interrupted [None]
